FAERS Safety Report 14720566 (Version 2)
Quarter: 2018Q2

REPORT INFORMATION
  Report Type: Spontaneous
  Country: DE (occurrence: DE)
  Receive Date: 20180405
  Receipt Date: 20180618
  Transmission Date: 20180711
  Serious: Yes (Hospitalization, Other)
  Sender: FDA-Public Use
  Company Number: DE-SA-2018SA099998

PATIENT
  Age: 62 Year
  Sex: Male

DRUGS (2)
  1. DUPIXENT [Suspect]
     Active Substance: DUPILUMAB
     Indication: NEURODERMATITIS
  2. DUPIXENT [Suspect]
     Active Substance: DUPILUMAB
     Indication: DERMATITIS ATOPIC
     Dosage: 300 MG, UNK
     Route: 058
     Dates: start: 20180112, end: 20180327

REACTIONS (3)
  - Ascites [Not Recovered/Not Resolved]
  - Weight increased [Not Recovered/Not Resolved]
  - Erectile dysfunction [Unknown]

NARRATIVE: CASE EVENT DATE: 2018
